FAERS Safety Report 7385913-3 (Version None)
Quarter: 2011Q1

REPORT INFORMATION
  Report Type: 
  Country: None (occurrence: None)
  Receive Date: 20110331
  Receipt Date: 20110325
  Transmission Date: 20110831
  Serious: Yes (Life-Threatening, Hospitalization)
  Sender: FDA-Public Use
  Company Number: FR-AMGEN-FRASP2011008445

PATIENT
  Age: 47 Year
  Sex: Male

DRUGS (4)
  1. ETOPOSIDE [Concomitant]
     Dosage: 230 MG, UNK
     Dates: start: 20110104, end: 20110101
  2. NEULASTA [Suspect]
     Indication: CHEMOTHERAPY
     Dosage: 6 MG, ONE TIME DOSE
     Dates: start: 20110108, end: 20110108
  3. CISPLATIN [Concomitant]
     Dosage: 227 MG, UNK
     Dates: start: 20110104
  4. NEUPOGEN [Suspect]
     Indication: CHEMOTHERAPY
     Dosage: 90 A?G, UNK
     Dates: start: 20110113

REACTIONS (2)
  - DRUG INEFFECTIVE [None]
  - NEUTROPENIA [None]
